FAERS Safety Report 8916715 (Version 1)
Quarter: 2012Q4

REPORT INFORMATION
  Report Type: 
  Country: US (occurrence: US)
  Receive Date: 20121120
  Receipt Date: 20121120
  Transmission Date: 20130627
  Serious: Yes (Other)
  Sender: FDA-Public Use
  Company Number: US-BAYER-2012-118907

PATIENT
  Age: 45 Year
  Sex: Female
  Weight: 79.2 kg

DRUGS (7)
  1. YAZ [Suspect]
  2. GIANVI [Suspect]
  3. MULTIVITAMINS [Concomitant]
  4. SLOW FE [Concomitant]
  5. COLACE [Concomitant]
  6. MOTRIN [Concomitant]
  7. NORCO [Concomitant]

REACTIONS (1)
  - Deep vein thrombosis [None]
